FAERS Safety Report 8938502 (Version 1)
Quarter: 2012Q4

REPORT INFORMATION
  Report Type: 
  Country: US (occurrence: US)
  Receive Date: 20121130
  Receipt Date: 20121130
  Transmission Date: 20130627
  Serious: Yes (Other)
  Sender: FDA-Public Use
  Company Number: US-BRISTOL-MYERS SQUIBB COMPANY-17149386

PATIENT
  Age: 60 Year
  Sex: Male
  Weight: 112.47 kg

DRUGS (1)
  1. ORENCIA [Suspect]
     Indication: RHEUMATOID ARTHRITIS
     Dosage: Orencia was resumed on 14Nov2012

REACTIONS (2)
  - Lung infiltration [Recovered/Resolved]
  - Pyrexia [Unknown]
